FAERS Safety Report 10162438 (Version 1)
Quarter: 2014Q2

REPORT INFORMATION
  Report Type: Spontaneous
  Country: US (occurrence: US)
  Receive Date: 20140509
  Receipt Date: 20140509
  Transmission Date: 20141212
  Serious: No
  Sender: FDA-Public Use
  Company Number: US-GLAXOSMITHKLINE-A1065149A

PATIENT
  Age: 87 Year
  Sex: Female

DRUGS (3)
  1. ALTABAX [Suspect]
     Indication: LOCALISED INFECTION
     Dosage: 1APP TWICE PER DAY
     Route: 061
     Dates: start: 20140307
  2. SYNTHROID [Concomitant]
  3. LIPITOR [Concomitant]

REACTIONS (9)
  - Diarrhoea [Unknown]
  - Nasal dryness [Unknown]
  - Nasal discomfort [Unknown]
  - Erythema [Unknown]
  - Rhinorrhoea [Unknown]
  - Abdominal pain [Unknown]
  - Insomnia [Unknown]
  - Off label use [Unknown]
  - Drug ineffective [Unknown]
